FAERS Safety Report 5317875-4 (Version None)
Quarter: 2007Q2

REPORT INFORMATION
  Report Type: 
  Country: None (occurrence: None)
  Receive Date: 20070430
  Receipt Date: 20070427
  Transmission Date: 20071010
  Serious: Yes (Hospitalization)
  Sender: FDA-Public Use
  Company Number: 2007SP003939

PATIENT
  Age: 54 Year
  Sex: Male
  Weight: 74 kg

DRUGS (6)
  1. TEMODAL [Suspect]
     Indication: GLIOBLASTOMA MULTIFORME
     Dosage: 75 MG/M2; 150 MG/M2 : QD: PO
     Route: 048
     Dates: start: 20061002, end: 20061112
  2. TEMODAL [Suspect]
     Indication: GLIOBLASTOMA MULTIFORME
     Dosage: 75 MG/M2; 150 MG/M2 : QD: PO
     Route: 048
     Dates: start: 20061215, end: 20061219
  3. EXCEGRAN [Concomitant]
  4. RINDERON [Concomitant]
  5. GASTER [Concomitant]
  6. PURSENNID [Concomitant]

REACTIONS (1)
  - NEOPLASM PROGRESSION [None]
